FAERS Safety Report 14882202 (Version 1)
Quarter: 2018Q2

REPORT INFORMATION
  Report Type: Spontaneous
  Country: US (occurrence: US)
  Receive Date: 20180511
  Receipt Date: 20180511
  Transmission Date: 20180711
  Serious: No
  Sender: FDA-Public Use
  Company Number: US-009507513-1805USA003289

PATIENT
  Age: 23 Year
  Sex: Female

DRUGS (3)
  1. ISENTRESS [Suspect]
     Active Substance: RALTEGRAVIR POTASSIUM
     Dosage: UNK; STARTED AT 15 WEEKS OF GESTATIONAL PERIOD; TOTAL DAILY DOSE: 2 (UNITS UNSPECIFIED)
     Route: 048
  2. LAMIVUDINE AND ZIDOVUDINE [Suspect]
     Active Substance: LAMIVUDINE\ZIDOVUDINE
     Dosage: UNK; STARTED AT 15 WEEKS OF GESTATIONAL PERIOD; TOTAL DAILY DOSE: 2 (UNITS UNSPECIFIED)
     Route: 048
  3. ZIDOVUDINE. [Suspect]
     Active Substance: ZIDOVUDINE
     Dosage: UNK; STARTED AT 39 WEEKS OF GESTATIONAL PERIOD; TOTAL DAILY DOSE: 788 (UNITS UNSPECIFIED)
     Route: 048

REACTIONS (2)
  - No adverse event [Unknown]
  - Maternal exposure during pregnancy [Recovered/Resolved]
